FAERS Safety Report 8152572-1 (Version None)
Quarter: 2012Q1

REPORT INFORMATION
  Report Type: 
  Country: None (occurrence: None)
  Receive Date: 20120221
  Receipt Date: 20120213
  Transmission Date: 20120608
  Serious: Yes (Hospitalization, Other)
  Sender: FDA-Public Use
  Company Number: US-BAYER-2011-085342

PATIENT
  Sex: Female
  Weight: 113.38 kg

DRUGS (11)
  1. PROTONIX [Concomitant]
     Dosage: 40 MG, QD
  2. IBUPROFEN (ADVIL) [Concomitant]
     Dosage: UNK
     Dates: start: 19990101
  3. RHINOCORT [Concomitant]
  4. ADVAIR DISKUS 100/50 [Concomitant]
     Indication: ASTHMA
     Dosage: UNK
     Dates: start: 19990101
  5. NAPROXEN (ALEVE) [Concomitant]
     Dosage: UNK
     Dates: start: 19990101
  6. YASMIN [Suspect]
     Indication: CONTRACEPTION
     Dosage: UNK
     Dates: start: 20000101, end: 20070101
  7. SINGULAIR [Concomitant]
     Indication: ASTHMA
     Dosage: UNK
     Dates: start: 19990101
  8. WELLBUTRIN [Concomitant]
     Dosage: 300 MG, QD
  9. SYNTHROID [Concomitant]
     Indication: HYPOTHYROIDISM
     Dosage: UNK
     Dates: start: 19990101
  10. ZYRTEC [Concomitant]
     Indication: MULTIPLE ALLERGIES
     Dosage: UNK
  11. ALBUTEROL [Concomitant]
     Indication: ASTHMA
     Dosage: UNK
     Dates: start: 19990101

REACTIONS (5)
  - PAIN [None]
  - CHOLECYSTITIS ACUTE [None]
  - CHOLELITHIASIS [None]
  - INJURY [None]
  - FEAR [None]
